FAERS Safety Report 8762512 (Version 2)
Quarter: 2012Q4

REPORT INFORMATION
  Report Type: 
  Country: US (occurrence: US)
  Receive Date: 20120830
  Receipt Date: 20121005
  Transmission Date: 20130627
  Serious: No
  Sender: FDA-Public Use
  Company Number: US-PFIZER INC-2012208814

PATIENT
  Age: 78 Year
  Sex: Female
  Weight: 55.78 kg

DRUGS (2)
  1. PREMARIN [Suspect]
     Indication: HORMONE REPLACEMENT THERAPY
     Dosage: UNK
  2. PROVERA [Suspect]
     Indication: HORMONE REPLACEMENT THERAPY
     Dosage: UNK

REACTIONS (3)
  - Dependence [Recovered/Resolved]
  - Depressed mood [Recovered/Resolved]
  - Feeling abnormal [Recovered/Resolved]
